FAERS Safety Report 23615039 (Version 3)
Quarter: 2024Q4

REPORT INFORMATION
  Report Type: Report from Study
  Country: NL (occurrence: NL)
  Receive Date: 20240311
  Receipt Date: 20241002
  Transmission Date: 20250114
  Serious: Yes (Disabling, Other)
  Sender: ABBVIE
  Company Number: NL-ABBVIE-5672214

PATIENT
  Age: 65 Year
  Sex: Male
  Weight: 80 kg

DRUGS (4)
  1. CARBIDOPA\LEVODOPA [Suspect]
     Active Substance: CARBIDOPA\LEVODOPA
     Indication: Parkinson^s disease
     Dosage: MD 5.0 ML; CD 6.0 ML/H; ED 2.0 ML; CND 5.1 ML/H, DURATION TEXT: REMAINS AT 24 HOURS
     Route: 050
     Dates: start: 20230425, end: 20240712
  2. CARBIDOPA\LEVODOPA [Suspect]
     Active Substance: CARBIDOPA\LEVODOPA
     Dosage: MD 5.0 ML; CD 5.8 ML/H; ED 2.0 ML; CND 5.1 ML/H, DURATION : REMAINS AT 24 HOURS
     Route: 050
     Dates: start: 20221107, end: 20230425
  3. CARBIDOPA\LEVODOPA [Suspect]
     Active Substance: CARBIDOPA\LEVODOPA
     Dosage: MD 5.0 ML; CD 6.0 ML/H; ED 2.0 ML; CND 5.3 ML/H; AFTERNOON DOSAGE: 6.5 ML?DURATION TEXT: REMAINS ...
     Route: 050
     Dates: start: 20240712
  4. CARBIDOPA\LEVODOPA [Suspect]
     Active Substance: CARBIDOPA\LEVODOPA
     Route: 050
     Dates: start: 20101103

REACTIONS (17)
  - Blindness [Not Recovered/Not Resolved]
  - Abnormal dreams [Not Recovered/Not Resolved]
  - Unevaluable event [Not Recovered/Not Resolved]
  - Stoma site erythema [Not Recovered/Not Resolved]
  - Mobility decreased [Not Recovered/Not Resolved]
  - On and off phenomenon [Not Recovered/Not Resolved]
  - Stoma site irritation [Not Recovered/Not Resolved]
  - Memory impairment [Not Recovered/Not Resolved]
  - Loss of personal independence in daily activities [Not Recovered/Not Resolved]
  - Stoma site discharge [Recovered/Resolved]
  - Memory impairment [Not Recovered/Not Resolved]
  - Eye haemorrhage [Recovered/Resolved]
  - Restlessness [Not Recovered/Not Resolved]
  - Parkinson^s disease [Not Recovered/Not Resolved]
  - Blindness transient [Recovered/Resolved]
  - Unevaluable event [Not Recovered/Not Resolved]
  - Abnormal dreams [Recovered/Resolved]

NARRATIVE: CASE EVENT DATE: 20230101
